FAERS Safety Report 14726807 (Version 1)
Quarter: 2018Q2

REPORT INFORMATION
  Report Type: Spontaneous
  Country: JP (occurrence: JP)
  Receive Date: 20180406
  Receipt Date: 20180406
  Transmission Date: 20180711
  Serious: Yes (Other)
  Sender: FDA-Public Use
  Company Number: JP-ACTELION-A-CH2017-157110

PATIENT
  Age: 2 Year
  Sex: Female
  Weight: 7.65 kg

DRUGS (17)
  1. SAMSCA [Concomitant]
     Active Substance: TOLVAPTAN
     Dosage: 0.75 MG, QD
     Route: 051
  2. INCREMIN [Concomitant]
     Active Substance: FERRIC PYROPHOSPHATE
     Dosage: 1 ML, QD
     Route: 051
  3. FLUITRAN [Concomitant]
     Active Substance: TRICHLORMETHIAZIDE
     Indication: PULMONARY ARTERIAL HYPERTENSION
     Dosage: 2.8 MG, QD
     Route: 051
  4. ASPARA POTASSIUM [Concomitant]
     Active Substance: POTASSIUM ASPARTATE
     Dosage: 3 G, QD
     Route: 051
  5. BROMHEXINE [Concomitant]
     Active Substance: BROMHEXINE
     Dosage: 1.2 ML, QD
     Route: 051
  6. UPTRAVI [Suspect]
     Active Substance: SELEXIPAG
     Indication: PULMONARY ARTERIAL HYPERTENSION
     Dosage: 0.06 MG, BID
     Route: 048
     Dates: start: 20170427, end: 20170605
  7. L-CARBOCYSTEINE [Concomitant]
     Active Substance: CARBOCYSTEINE
     Dosage: 3 ML, QD
     Route: 051
  8. GASMOTIN [Concomitant]
     Active Substance: MOSAPRIDE CITRATE
     Dosage: 0.5 MG, QD
     Route: 051
  9. ASVERIN (TIPEPIDINE HIBENZATE) [Concomitant]
     Active Substance: TIPEPIDINE HIBENZATE
     Dosage: 2.5 ML, QD
     Route: 051
  10. LASIX [Concomitant]
     Active Substance: FUROSEMIDE
     Indication: PULMONARY ARTERIAL HYPERTENSION
     Dosage: 35 MG, QD
     Route: 051
  11. MEPTIN [Concomitant]
     Active Substance: PROCATEROL HYDROCHLORIDE
     Dosage: 2.5 ML, QD
     Route: 051
  12. UPTRAVI [Suspect]
     Active Substance: SELEXIPAG
     Dosage: 0.03 MG, BID
     Route: 048
     Dates: start: 20170327, end: 20170426
  13. ADCIRCA [Concomitant]
     Active Substance: TADALAFIL
     Indication: PULMONARY ARTERIAL HYPERTENSION
     Dosage: 8 MG, QD
     Route: 051
  14. ALDACTONE A [Concomitant]
     Active Substance: SPIRONOLACTONE
     Indication: PULMONARY ARTERIAL HYPERTENSION
     Dosage: 35 MG, QD
     Route: 051
  15. PERIACTIN [Concomitant]
     Active Substance: CYPROHEPTADINE HYDROCHLORIDE
     Dosage: 2.5 ML, QD
     Route: 051
  16. CILOSTAZOL. [Concomitant]
     Active Substance: CILOSTAZOL
     Dosage: 0.1 DF, QD
     Route: 051
  17. BIO-THREE [Concomitant]
     Active Substance: HERBALS
     Dosage: 1.5 G, QD
     Route: 051

REACTIONS (4)
  - Lymphoma [Unknown]
  - Diarrhoea [Recovered/Resolved]
  - Oedema [Recovered/Resolved]
  - Pulmonary congestion [Unknown]

NARRATIVE: CASE EVENT DATE: 20170605
